FAERS Safety Report 14339870 (Version 1)
Quarter: 2017Q4

REPORT INFORMATION
  Report Type: Spontaneous
  Country: GB (occurrence: GB)
  Receive Date: 20171230
  Receipt Date: 20171230
  Transmission Date: 20180321
  Serious: Yes (Other)
  Sender: FDA-Public Use
  Company Number: GB-MYLANLABS-2017M1083133

PATIENT
  Age: 69 Year
  Sex: Female

DRUGS (14)
  1. HYDRALAZINE [Suspect]
     Active Substance: HYDRALAZINE HYDROCHLORIDE
     Indication: PRODUCT USED FOR UNKNOWN INDICATION
     Route: 048
  2. MATRIFEN [Concomitant]
     Active Substance: FENTANYL
  3. FUROSEMIDE. [Concomitant]
     Active Substance: FUROSEMIDE
  4. BETAHISTINE [Concomitant]
     Active Substance: BETAHISTINE
  5. OMEPRAZOLE. [Concomitant]
     Active Substance: OMEPRAZOLE
  6. SIMVASTATIN. [Concomitant]
     Active Substance: SIMVASTATIN
  7. CALCEOS [Concomitant]
     Active Substance: CALCIUM CARBONATE\CHOLECALCIFEROL
  8. MOVELAT [Concomitant]
  9. QUININE [Concomitant]
     Active Substance: QUININE
  10. CLINDAMYCIN. [Concomitant]
     Active Substance: CLINDAMYCIN
  11. MOXONIDINE [Concomitant]
     Active Substance: MOXONIDINE
  12. SERETIDE [Concomitant]
     Active Substance: FLUTICASONE PROPIONATE\SALMETEROL XINAFOATE
  13. TRIMETHOPRIM. [Concomitant]
     Active Substance: TRIMETHOPRIM
  14. SALBUTAMOL [Concomitant]
     Active Substance: ALBUTEROL

REACTIONS (2)
  - Headache [Recovering/Resolving]
  - Dermatitis allergic [Recovering/Resolving]
